FAERS Safety Report 23951391 (Version 3)
Quarter: 2024Q2

REPORT INFORMATION
  Report Type: Spontaneous
  Country: NZ (occurrence: NZ)
  Receive Date: 20240607
  Receipt Date: 20240621
  Transmission Date: 20240716
  Serious: Yes (Death)
  Sender: FDA-Public Use
  Company Number: NZ-MYLANLABS-2024M1052157

PATIENT
  Age: 54 Year
  Sex: Female
  Weight: 120 kg

DRUGS (4)
  1. CLOZARIL [Suspect]
     Active Substance: CLOZAPINE
     Indication: Schizophrenia
     Dosage: UNK
     Route: 048
     Dates: start: 19980112
  2. CLOZARIL [Suspect]
     Active Substance: CLOZAPINE
     Dosage: 550 MILLIGRAM, PM (LONG-TERM)
     Route: 048
  3. AMISULPRIDE [Suspect]
     Active Substance: AMISULPRIDE
     Indication: Schizophrenia
     Dosage: 200 MILLIGRAM, BID (LONG-TERM)
     Route: 048
  4. QUETIAPINE [Suspect]
     Active Substance: QUETIAPINE
     Indication: Schizophrenia
     Dosage: 325 MILLIGRAM, PM (LONG-TERM)
     Route: 048

REACTIONS (1)
  - Death [Fatal]

NARRATIVE: CASE EVENT DATE: 20240511
